FAERS Safety Report 19250950 (Version 1)
Quarter: 2021Q2

REPORT INFORMATION
  Report Type: Spontaneous
  Country: US (occurrence: US)
  Receive Date: 20210512
  Receipt Date: 20210512
  Transmission Date: 20210717
  Serious: Yes (Other)
  Sender: FDA-Public Use
  Company Number: US-ALLERGAN-2118011US

PATIENT
  Sex: Female

DRUGS (3)
  1. RESTASIS [Suspect]
     Active Substance: CYCLOSPORINE
     Indication: DRY EYE
     Dosage: 2 GTT, BID
  2. WARFARIN [Concomitant]
     Active Substance: WARFARIN
  3. ENOXAPARIN SODIUM. [Concomitant]
     Active Substance: ENOXAPARIN SODIUM
     Dosage: 80 MG, BID

REACTIONS (5)
  - Eye irritation [Not Recovered/Not Resolved]
  - Economic problem [Unknown]
  - International normalised ratio increased [Unknown]
  - Dry eye [Not Recovered/Not Resolved]
  - Therapy cessation [Unknown]
